FAERS Safety Report 21159308 (Version 1)
Quarter: 2022Q3

REPORT INFORMATION
  Report Type: Spontaneous
  Country: GB (occurrence: GB)
  Receive Date: 20220802
  Receipt Date: 20220802
  Transmission Date: 20221026
  Serious: Yes (Other)
  Sender: FDA-Public Use
  Company Number: GB-SUN PHARMACEUTICAL INDUSTRIES LTD-2022RR-347122

PATIENT
  Age: 7 Decade
  Sex: Male

DRUGS (3)
  1. PREDNISOLONE [Suspect]
     Active Substance: PREDNISOLONE
     Indication: Epidermolysis bullosa
     Dosage: 1 MILLIGRAM/KILOGRAM, UNK
     Route: 065
  2. DOXYCYCLINE [Suspect]
     Active Substance: DOXYCYCLINE
     Indication: Epidermolysis bullosa
     Dosage: 200 MILLIGRAM, UNK
     Route: 065
  3. MYCOPHENOLATE MOFETIL [Suspect]
     Active Substance: MYCOPHENOLATE MOFETIL
     Indication: Epidermolysis bullosa
     Dosage: 1 GRAM, BID
     Route: 065

REACTIONS (2)
  - Therapeutic product effect incomplete [Unknown]
  - Pulmonary embolism [Unknown]
